FAERS Safety Report 24553622 (Version 1)
Quarter: 2024Q4

REPORT INFORMATION
  Report Type: Spontaneous
  Country: GR (occurrence: GR)
  Receive Date: 20241028
  Receipt Date: 20241028
  Transmission Date: 20250115
  Serious: No
  Sender: ROCHE
  Company Number: GR-IPSEN Group, Research and Development-2024-06507

PATIENT
  Sex: Female

DRUGS (1)
  1. NUTROPIN [Suspect]
     Active Substance: SOMATROPIN
     Indication: Product used for unknown indication
     Route: 065

REACTIONS (4)
  - Product dose omission issue [Unknown]
  - Incorrect dose administered [Unknown]
  - Product supply issue [Unknown]
  - No adverse event [Unknown]
